FAERS Safety Report 15116187 (Version 1)
Quarter: 2018Q3

REPORT INFORMATION
  Report Type: Spontaneous
  Country: FR (occurrence: FR)
  Receive Date: 20180706
  Receipt Date: 20180706
  Transmission Date: 20181010
  Serious: Yes (Hospitalization)
  Sender: FDA-Public Use
  Company Number: FR-PFIZER INC-2018267806

PATIENT
  Age: 53 Year
  Sex: Female
  Weight: 70 kg

DRUGS (2)
  1. XANAX [Suspect]
     Active Substance: ALPRAZOLAM
     Indication: INTENTIONAL OVERDOSE
     Dosage: 15 MG, SINGLE
     Route: 048
     Dates: start: 20180514, end: 20180514
  2. POTASSIUM [Concomitant]
     Active Substance: POTASSIUM
     Indication: INTENTIONAL OVERDOSE
     Dosage: 2 G, SINGLE
     Route: 042
     Dates: start: 20180514, end: 20180514

REACTIONS (4)
  - Somnolence [Recovered/Resolved]
  - Intentional self-injury [Recovered/Resolved]
  - Intentional overdose [Recovered/Resolved]
  - Poisoning deliberate [Recovered/Resolved]

NARRATIVE: CASE EVENT DATE: 20180514
